FAERS Safety Report 9013062 (Version 2)
Quarter: 2013Q1

REPORT INFORMATION
  Report Type: Spontaneous
  Country: JP (occurrence: JP)
  Receive Date: 20130114
  Receipt Date: 20130115
  Transmission Date: 20140127
  Serious: Yes (Other)
  Sender: FDA-Public Use
  Company Number: JP-PFIZER INC-2013009421

PATIENT
  Age: 62 Year
  Sex: Male

DRUGS (3)
  1. DOXORUBICIN HCL [Suspect]
     Indication: MALIGNANT FIBROUS HISTIOCYTOMA
     Dosage: 135 MG, 4 TIMES
  2. IFOSFAMIDE [Suspect]
     Indication: MALIGNANT FIBROUS HISTIOCYTOMA
     Dosage: 20 G, 3 TIMES
  3. IFOSFAMIDE [Suspect]
     Dosage: 17.5 G, SINGLE

REACTIONS (1)
  - Sweat gland tumour [Not Recovered/Not Resolved]
